FAERS Safety Report 8442461 (Version 2)
Quarter: 2014Q1

REPORT INFORMATION
  Report Type: Report from Study
  Country: KR (occurrence: KR)
  Receive Date: 20120306
  Receipt Date: 20140212
  Transmission Date: 20141002
  Serious: No
  Sender: FDA-Public Use
  Company Number: KR-JNJFOC-20120213110

PATIENT
  Age: 17 Year
  Sex: Male
  Weight: 54 kg

DRUGS (8)
  1. REMICADE [Suspect]
     Indication: CROHN^S DISEASE
     Route: 042
     Dates: start: 20111128, end: 20120130
  2. PENTASA [Concomitant]
     Indication: CROHN^S DISEASE
     Dates: start: 20090610
  3. AZATHIOPRINE [Concomitant]
     Indication: CROHN^S DISEASE
     Route: 048
     Dates: start: 20091126, end: 20100324
  4. AZATHIOPRINE [Concomitant]
     Indication: CROHN^S DISEASE
     Route: 048
     Dates: start: 20090610, end: 20090923
  5. AZATHIOPRINE [Concomitant]
     Indication: CROHN^S DISEASE
     Route: 048
     Dates: start: 20090924, end: 20091125
  6. AZATHIOPRINE [Concomitant]
     Indication: CROHN^S DISEASE
     Route: 048
     Dates: start: 20110312
  7. AZATHIOPRINE [Concomitant]
     Indication: CROHN^S DISEASE
     Route: 048
     Dates: start: 20110315, end: 20110511
  8. AZATHIOPRINE [Concomitant]
     Indication: CROHN^S DISEASE
     Route: 048
     Dates: start: 20100325, end: 20110314

REACTIONS (1)
  - Upper respiratory tract infection [Recovered/Resolved]
